FAERS Safety Report 8073683-5 (Version None)
Quarter: 2012Q1

REPORT INFORMATION
  Report Type: 
  Country: None (occurrence: None)
  Receive Date: 20120126
  Receipt Date: 20120119
  Transmission Date: 20120608
  Serious: Yes (Disabling, Other)
  Sender: FDA-Public Use
  Company Number: US-PFIZER INC-2012016882

PATIENT
  Sex: Female

DRUGS (1)
  1. LYRICA [Suspect]
     Dosage: UNK

REACTIONS (15)
  - MENTAL IMPAIRMENT [None]
  - FRUSTRATION [None]
  - HEADACHE [None]
  - MEMORY IMPAIRMENT [None]
  - INSOMNIA [None]
  - IMPAIRED WORK ABILITY [None]
  - PAIN [None]
  - PAIN IN EXTREMITY [None]
  - FATIGUE [None]
  - FEAR [None]
  - MUSCULAR WEAKNESS [None]
  - APHASIA [None]
  - MUSCLE SPASMS [None]
  - CHEST PAIN [None]
  - SPINAL CORD COMPRESSION [None]
